FAERS Safety Report 18041454 (Version 3)
Quarter: 2020Q3

REPORT INFORMATION
  Report Type: Spontaneous
  Country: PT (occurrence: PT)
  Receive Date: 20200719
  Receipt Date: 20200922
  Transmission Date: 20201103
  Serious: Yes (Other)
  Sender: FDA-Public Use
  Company Number: PT-AUROBINDO-AUR-APL-2020-035442

PATIENT
  Age: 51 Year
  Sex: Male

DRUGS (2)
  1. EMTRICITABINE +TENOFOVIR FILM COATED TABLETS [Suspect]
     Active Substance: EMTRICITABINE\TENOFOVIR
     Indication: HIV INFECTION
     Dosage: UNK
     Route: 065
     Dates: start: 2009
  2. RALTEGRAVIR. [Suspect]
     Active Substance: RALTEGRAVIR
     Indication: HIV INFECTION
     Dosage: UNK
     Route: 065
     Dates: start: 2009

REACTIONS (9)
  - Therapy non-responder [Recovering/Resolving]
  - Drug ineffective [Unknown]
  - Amnestic disorder [Recovering/Resolving]
  - Chorea [Recovering/Resolving]
  - Cerebellar syndrome [Recovering/Resolving]
  - Drug resistance [Recovering/Resolving]
  - Treatment noncompliance [Recovering/Resolving]
  - Abnormal behaviour [Recovering/Resolving]
  - CSF HIV escape syndrome [Recovering/Resolving]

NARRATIVE: CASE EVENT DATE: 2019
